FAERS Safety Report 8661489 (Version 3)
Quarter: 2013Q4

REPORT INFORMATION
  Report Type: Spontaneous
  Country: US (occurrence: US)
  Receive Date: 20120712
  Receipt Date: 20131101
  Transmission Date: 20140711
  Serious: No
  Sender: FDA-Public Use
  Company Number: US-009507513-1207USA000747

PATIENT
  Sex: Female

DRUGS (10)
  1. VICTRELIS [Suspect]
     Indication: HEPATITIS C
     Dosage: 800 MG, TID
     Route: 048
     Dates: start: 201201
  2. RIBAPAK [Suspect]
     Dosage: 1200 MG, QD
  3. RIBAPAK [Suspect]
     Dosage: 600 MG, QD
  4. PEGASYS [Suspect]
  5. ADVAIR [Concomitant]
  6. VITAMINE D3 [Concomitant]
  7. SYNTHROID [Concomitant]
  8. EXFORGE [Concomitant]
  9. CALCIUM ER [Concomitant]
  10. FISH OIL [Concomitant]

REACTIONS (1)
  - Haemoglobin decreased [Unknown]
